FAERS Safety Report 9164898 (Version 1)
Quarter: 2013Q1

REPORT INFORMATION
  Report Type: Spontaneous
  Country: US (occurrence: None)
  Receive Date: 20130228
  Receipt Date: 20130228
  Transmission Date: 20140127
  Serious: Yes (Other)
  Sender: FDA-Public Use
  Company Number: 2013HINLIT0021

PATIENT
  Age: 54 Year
  Sex: Female

DRUGS (12)
  1. LOPINAVIR + RITONAVIR [Suspect]
  2. TENOFOVIR [Suspect]
  3. EMTRICITABINE [Suspect]
  4. ZIDOVUDINE [Concomitant]
  5. LAMIVUDINE [Concomitant]
  6. INDINAVIR [Concomitant]
  7. STAVUDINE [Concomitant]
  8. DIDANOSINE [Concomitant]
  9. HYDROXYUREA (HYDROXYCARBAMIDE) [Concomitant]
  10. NELFINAVIR [Concomitant]
  11. SAQUINAVIR [Concomitant]
  12. NEVIRAPLNE [Concomitant]

REACTIONS (1)
  - Myocardial infarction [None]
